FAERS Safety Report 25326486 (Version 1)
Quarter: 2025Q2

REPORT INFORMATION
  Report Type: Report from Study
  Country: US (occurrence: US)
  Receive Date: 20250516
  Receipt Date: 20250516
  Transmission Date: 20250717
  Serious: No
  Sender: MALLINCKRODT
  Company Number: US-MALLINCKRODT-MNK202502927

PATIENT
  Age: 70 Year
  Sex: Male

DRUGS (1)
  1. CORTICOTROPIN [Suspect]
     Active Substance: CORTICOTROPIN
     Indication: Sarcoidosis
     Route: 030
     Dates: start: 202306

REACTIONS (2)
  - Rash [Unknown]
  - Herpes zoster [Unknown]

NARRATIVE: CASE EVENT DATE: 20250401
